FAERS Safety Report 25914230 (Version 1)
Quarter: 2025Q4

REPORT INFORMATION
  Report Type: Other
  Country: CN (occurrence: CN)
  Receive Date: 20251013
  Receipt Date: 20251013
  Transmission Date: 20260117
  Serious: Yes (Life-Threatening, Hospitalization, Other)
  Sender: INCYTE
  Company Number: CN-002147023-NVSC2025CN151678

PATIENT
  Age: 61 Year
  Weight: 36 kg

DRUGS (3)
  1. RUXOLITINIB [Suspect]
     Active Substance: RUXOLITINIB
     Indication: Primary myelofibrosis
     Dosage: 10.000 MG, BID
  2. THALIDOMIDE [Concomitant]
     Active Substance: THALIDOMIDE
     Indication: Primary myelofibrosis
     Dosage: 50 MG, QD
  3. HYDROXYUREA [Concomitant]
     Active Substance: HYDROXYUREA
     Indication: Primary myelofibrosis
     Dosage: 250.000 MG, TID

REACTIONS (3)
  - Myelosuppression [Not Recovered/Not Resolved]
  - Cerebral haemorrhage [Unknown]
  - Somnolence [Unknown]
